FAERS Safety Report 8887762 (Version 1)
Quarter: 2012Q4

REPORT INFORMATION
  Report Type: 
  Country: BR (occurrence: BR)
  Receive Date: 20121106
  Receipt Date: 20121106
  Transmission Date: 20130627
  Serious: Yes (Other)
  Sender: FDA-Public Use
  Company Number: BR-AMGEN-BRACT2011045708

PATIENT
  Age: 61 Year
  Sex: Female
  Weight: 52 kg

DRUGS (15)
  1. ENBREL [Suspect]
     Indication: RHEUMATOID ARTHRITIS
     Dosage: 25 mg, 2x/week
     Route: 058
     Dates: start: 200707, end: 201107
  2. PARACETAMOL [Concomitant]
     Dosage: 400 mg, UNK
  3. ENALAPRIL [Concomitant]
     Dosage: 20 mg, 2x/day
  4. AMLODIPINE [Concomitant]
     Dosage: 25 mg
  5. AMLODIPINE [Concomitant]
     Dosage: 25 mg
  6. CALCIUM [Concomitant]
  7. FAMOTIDINE [Concomitant]
  8. RISEDRONATE SODIUM [Concomitant]
     Dosage: 1 tablet of 35 mg, 1x/week
     Route: 048
  9. DILTIAZEM HYDROCHLORIDE [Concomitant]
     Dosage: 1 tablet of 60 mg, 3x/day
     Route: 048
  10. ENALAPRIL MALEATE [Concomitant]
     Dosage: 1 tablet of 20 mg, 2x/day
  11. CIPROFIBRATE [Concomitant]
     Dosage: 1 tablet of 100 mg, 1x/day
  12. TENOXICAM [Concomitant]
     Dosage: 15 mg, UNK
  13. CALTRATE                           /00944201/ [Concomitant]
     Dosage: UNK
  14. RANITIDINE [Concomitant]
     Dosage: 40 mg, UNK
  15. TRIAMCINOLONE [Concomitant]
     Dosage: 2 mg, 3 tablets twice daily

REACTIONS (9)
  - Immunodeficiency [Unknown]
  - Limb injury [Unknown]
  - Vessel perforation [Not Recovered/Not Resolved]
  - Skin atrophy [Unknown]
  - VIIth nerve paralysis [Not Recovered/Not Resolved]
  - Pneumonia [Unknown]
  - Injection site haematoma [Not Recovered/Not Resolved]
  - Erysipelas [Unknown]
  - Infection [Unknown]
